FAERS Safety Report 8603905-0 (Version None)
Quarter: 2012Q3

REPORT INFORMATION
  Report Type: 
  Country: None (occurrence: None)
  Receive Date: 20120820
  Receipt Date: 20120813
  Transmission Date: 20120928
  Serious: Yes (Other)
  Sender: FDA-Public Use
  Company Number: GB-AMGEN-GBRCT2012051914

PATIENT
  Age: 17 Year
  Sex: Male
  Weight: 72.2 kg

DRUGS (4)
  1. DICLOFENAC [Concomitant]
     Dosage: 75 MG, 2X/DAY
     Route: 048
     Dates: start: 20050101
  2. ETANERCEPT [Suspect]
     Indication: PRODUCT USED FOR UNKNOWN INDICATION
     Dosage: 22 MG, 2X/WEEK
     Route: 058
     Dates: start: 20050422, end: 20090828
  3. ABATACEPT [Concomitant]
     Dosage: 700 MG, MONTHLY
     Route: 042
     Dates: start: 20100501
  4. ONDANSETRON [Concomitant]
     Dosage: 8 MG, 3X/DAY
     Route: 048
     Dates: start: 20051201

REACTIONS (2)
  - INJECTION SITE PRURITUS [None]
  - INJECTION SITE RASH [None]
